FAERS Safety Report 5000503-5 (Version None)
Quarter: 2006Q2

REPORT INFORMATION
  Report Type: 
  Country: None (occurrence: None)
  Receive Date: 20060501
  Receipt Date: 20060418
  Transmission Date: 20061013
  Serious: Yes (Other)
  Sender: FDA-Public Use
  Company Number: 2006052569

PATIENT
  Sex: Male
  Weight: 85.7298 kg

DRUGS (6)
  1. VIAGRA [Suspect]
     Indication: ERECTILE DYSFUNCTION
     Dosage: 25 MG
     Dates: start: 20030101
  2. SULAR [Suspect]
     Indication: HYPERTENSION
  3. LOTENSIN [Suspect]
     Indication: HYPERTENSION
  4. ULTRAM [Concomitant]
  5. CLONOPIN [Concomitant]
  6. ACETYLSALICYLIC ACID SRT [Concomitant]

REACTIONS (8)
  - ARTERIOSCLEROSIS [None]
  - BLOOD PRESSURE INCREASED [None]
  - CEREBRAL DISORDER [None]
  - CEREBRAL HYPOPERFUSION [None]
  - CEREBROVASCULAR ACCIDENT [None]
  - HYPOTENSION [None]
  - VASCULAR OCCLUSION [None]
  - WRONG TECHNIQUE IN DRUG USAGE PROCESS [None]
